FAERS Safety Report 8478911-X (Version None)
Quarter: 2012Q2

REPORT INFORMATION
  Report Type: 
  Country: None (occurrence: None)
  Receive Date: 20120629
  Receipt Date: 20120625
  Transmission Date: 20120825
  Serious: Yes (Death)
  Sender: FDA-Public Use
  Company Number: US-CELGENEUS-163-21880-12063547

PATIENT
  Sex: Male

DRUGS (22)
  1. PRILOSEC [Concomitant]
     Dosage: 20 MILLIGRAM
     Route: 048
     Dates: start: 20111025
  2. BESIVANCE [Concomitant]
     Dosage: .6 PERCENT
     Route: 065
  3. ALKERAN [Concomitant]
     Dosage: 2 MILLIGRAM
     Route: 048
  4. REVLIMID [Suspect]
     Dosage: 15 MILLIGRAM
     Route: 048
     Dates: start: 20110601
  5. GLUCOTROL XL [Concomitant]
     Dosage: 5 MILLIGRAM
     Route: 048
  6. LASIX [Concomitant]
     Dosage: 20 MILLIGRAM
     Route: 048
     Dates: start: 20090224
  7. LASIX [Concomitant]
     Dosage: 20 MILLIGRAM
     Route: 048
  8. LASIX [Concomitant]
     Dosage: 20 MILLIGRAM
     Route: 048
  9. ZOMETA [Concomitant]
     Dosage: 4 MILLIGRAM
     Route: 065
  10. CARAFATE [Concomitant]
     Dosage: 1 GRAM
     Route: 048
  11. ALDACTONE [Concomitant]
     Dosage: 25 MILLIGRAM
     Route: 048
  12. IPRATROPIUM BROMIDE [Concomitant]
     Route: 065
  13. VALIUM [Concomitant]
     Dosage: 5 MILLIGRAM
     Route: 048
  14. DUREZOL [Concomitant]
     Dosage: .05 PERCENT
     Route: 065
  15. REVLIMID [Suspect]
     Indication: MULTIPLE MYELOMA
     Dosage: 10 MILLIGRAM
     Route: 048
     Dates: start: 20081101
  16. REVLIMID [Suspect]
     Dosage: 20 MILLIGRAM
     Route: 048
     Dates: start: 20111001
  17. DEXAMETHASONE [Concomitant]
     Dosage: 4 MILLIGRAM
     Route: 048
     Dates: start: 20090224
  18. ZOMETA [Concomitant]
     Dosage: 4 MILLIGRAM
     Route: 050
  19. CALCIUM +D [Concomitant]
     Dosage: 600-400
     Route: 048
  20. ASPIRIN [Concomitant]
     Dosage: 81 MILLIGRAM
     Route: 048
  21. COREG [Concomitant]
     Dosage: 12.5 MILLIGRAM
     Route: 048
  22. MUCINEX [Concomitant]
     Dosage: 600 MILLIGRAM
     Route: 048

REACTIONS (1)
  - DEATH [None]
